APPROVED DRUG PRODUCT: THIORIDAZINE HYDROCHLORIDE
Active Ingredient: THIORIDAZINE HYDROCHLORIDE
Strength: 50MG
Dosage Form/Route: TABLET;ORAL
Application: A088563 | Product #001
Applicant: WATSON LABORATORIES INC
Approved: May 11, 1984 | RLD: No | RS: No | Type: DISCN